FAERS Safety Report 13037044 (Version 12)
Quarter: 2025Q3

REPORT INFORMATION
  Report Type: Other
  Country: CA (occurrence: CA)
  Receive Date: 20161216
  Receipt Date: 20250919
  Transmission Date: 20251020
  Serious: Yes (Hospitalization, Other)
  Sender: APOTEX
  Company Number: CA-APOTEX-2016AP015547

PATIENT
  Age: 41 Year
  Sex: Female

DRUGS (41)
  1. CLONAZEPAM [Interacting]
     Active Substance: CLONAZEPAM
     Indication: Insomnia
     Dosage: UNK UNK, QD
     Route: 065
  2. CLONAZEPAM [Interacting]
     Active Substance: CLONAZEPAM
     Dosage: 1 DOSAGE FORM, QD
     Route: 048
  3. CLONAZEPAM [Interacting]
     Active Substance: CLONAZEPAM
     Dosage: 1 DOSAGE FORM, QD
     Route: 065
  4. CLONAZEPAM [Interacting]
     Active Substance: CLONAZEPAM
     Route: 065
  5. QUETIAPINE [Interacting]
     Active Substance: QUETIAPINE
     Indication: Insomnia
     Dosage: 25 MILLIGRAM, QD
     Route: 048
  6. QUETIAPINE [Interacting]
     Active Substance: QUETIAPINE
     Route: 048
  7. QUETIAPINE [Interacting]
     Active Substance: QUETIAPINE
     Route: 048
  8. DULOXETINE [Interacting]
     Active Substance: DULOXETINE
     Indication: Product used for unknown indication
     Route: 065
  9. DULOXETINE [Interacting]
     Active Substance: DULOXETINE
     Route: 065
  10. DULOXETINE [Interacting]
     Active Substance: DULOXETINE
     Route: 065
  11. ABILIFY MAINTENA [Interacting]
     Active Substance: ARIPIPRAZOLE
     Indication: Insomnia
     Route: 030
  12. ABILIFY MAINTENA [Interacting]
     Active Substance: ARIPIPRAZOLE
     Route: 065
  13. ABILIFY MAINTENA [Interacting]
     Active Substance: ARIPIPRAZOLE
     Route: 030
  14. ABILIFY MAINTENA [Interacting]
     Active Substance: ARIPIPRAZOLE
     Dosage: 1 DOSAGE FORM, QD
     Route: 030
  15. ABILIFY MAINTENA [Interacting]
     Active Substance: ARIPIPRAZOLE
     Route: 030
  16. ABILIFY MAINTENA [Interacting]
     Active Substance: ARIPIPRAZOLE
     Route: 065
  17. ABILIFY MAINTENA [Interacting]
     Active Substance: ARIPIPRAZOLE
     Route: 065
  18. ABILIFY MAINTENA [Interacting]
     Active Substance: ARIPIPRAZOLE
     Route: 065
  19. CYMBALTA [Interacting]
     Active Substance: DULOXETINE HYDROCHLORIDE
     Indication: Insomnia
     Route: 048
  20. CYMBALTA [Interacting]
     Active Substance: DULOXETINE HYDROCHLORIDE
     Route: 048
  21. CYMBALTA [Interacting]
     Active Substance: DULOXETINE HYDROCHLORIDE
     Route: 048
  22. CYMBALTA [Interacting]
     Active Substance: DULOXETINE HYDROCHLORIDE
     Route: 065
  23. CYMBALTA [Interacting]
     Active Substance: DULOXETINE HYDROCHLORIDE
     Route: 065
  24. ABILIFY [Interacting]
     Active Substance: ARIPIPRAZOLE
     Indication: Product used for unknown indication
     Route: 030
  25. ABILIFY [Interacting]
     Active Substance: ARIPIPRAZOLE
     Route: 030
  26. ABILIFY [Interacting]
     Active Substance: ARIPIPRAZOLE
     Route: 048
  27. ABILIFY [Interacting]
     Active Substance: ARIPIPRAZOLE
     Route: 065
  28. ABILIFY [Interacting]
     Active Substance: ARIPIPRAZOLE
     Route: 065
  29. ABILIFY [Interacting]
     Active Substance: ARIPIPRAZOLE
     Route: 065
  30. ABILIFY [Interacting]
     Active Substance: ARIPIPRAZOLE
     Route: 048
  31. CLONAZEPAM [Interacting]
     Active Substance: CLONAZEPAM
     Indication: Product used for unknown indication
     Dosage: 1 DOSAGE FORM, QD
     Route: 030
  32. ARIPIPRAZOLE [Interacting]
     Active Substance: ARIPIPRAZOLE
     Indication: Product used for unknown indication
     Route: 030
  33. ABILIFY MAINTENA [Interacting]
     Active Substance: ARIPIPRAZOLE
     Indication: Product used for unknown indication
     Route: 029
  34. ORYZANOL [Interacting]
     Active Substance: GAMMA ORYZANOL
     Indication: Product used for unknown indication
     Route: 030
  35. RIVOTRIL [Interacting]
     Active Substance: CLONAZEPAM
     Indication: Insomnia
     Dosage: 1 DOSAGE FORM, QD
     Route: 048
  36. RIVOTRIL [Interacting]
     Active Substance: CLONAZEPAM
     Route: 048
  37. ABILIFY MAINTENA [Interacting]
     Active Substance: ARIPIPRAZOLE
     Indication: Product used for unknown indication
     Route: 065
  38. ABILIFY MAINTENA [Interacting]
     Active Substance: ARIPIPRAZOLE
     Route: 030
  39. ABILIFY MAINTENA [Interacting]
     Active Substance: ARIPIPRAZOLE
     Route: 065
  40. ABILIFY MAINTENA [Interacting]
     Active Substance: ARIPIPRAZOLE
     Route: 030
  41. ABILIFY MAINTENA [Interacting]
     Active Substance: ARIPIPRAZOLE
     Route: 030

REACTIONS (13)
  - Prescribed overdose [Unknown]
  - Overdose [Unknown]
  - Intentional product use issue [Unknown]
  - Off label use [Unknown]
  - Drug interaction [Unknown]
  - Stubbornness [Unknown]
  - Prescribed underdose [Unknown]
  - Product use in unapproved indication [Unknown]
  - Product use issue [Unknown]
  - Mood altered [Unknown]
  - Thinking abnormal [Unknown]
  - Abnormal behaviour [Unknown]
  - Incorrect route of product administration [Unknown]
